FAERS Safety Report 26095754 (Version 2)
Quarter: 2025Q4

REPORT INFORMATION
  Report Type: Spontaneous
  Country: US (occurrence: US)
  Receive Date: 20251127
  Receipt Date: 20251205
  Transmission Date: 20260117
  Serious: Yes (Other)
  Sender: SANDOZ
  Company Number: US-SANDOZ-SDZ2025US088264

PATIENT
  Age: 69 Year
  Sex: Male
  Weight: 84 kg

DRUGS (2)
  1. CARBOPLATIN [Suspect]
     Active Substance: CARBOPLATIN
     Indication: Prostate cancer metastatic
     Dosage: 137 MG, Q3W (7 DOSES OVER COURSE OF TRIAL)
     Route: 042
     Dates: start: 20250205, end: 20250731
  2. PLUVICTO [Suspect]
     Active Substance: LUTETIUM LU-177 VIPIVOTIDE TETRAXETAN
     Indication: Prostate cancer metastatic
     Dosage: 200 UCI, Q6W (6 DOSES OVER COURSE OF TRIAL)
     Route: 042
     Dates: start: 20250206, end: 20250912

REACTIONS (1)
  - Thrombocytopenia [Unknown]
